FAERS Safety Report 8455051-7 (Version None)
Quarter: 2012Q2

REPORT INFORMATION
  Report Type: 
  Country: None (occurrence: None)
  Receive Date: 20120621
  Receipt Date: 20120613
  Transmission Date: 20120825
  Serious: Yes (Hospitalization)
  Sender: FDA-Public Use
  Company Number: US-UCBSA-057811

PATIENT
  Age: 75 Year
  Sex: Female

DRUGS (36)
  1. LASIX [Concomitant]
     Route: 048
     Dates: start: 20120218, end: 20120223
  2. CARDIZEM CD [Concomitant]
     Indication: ANGINA PECTORIS
     Route: 048
     Dates: start: 20100101
  3. PREDNISOLONE ACETATE [Concomitant]
     Indication: CATARACT
     Dosage: 1 DROP QID
     Route: 047
     Dates: start: 20120314
  4. METOPROLOL [Concomitant]
     Indication: HYPERTENSION
     Route: 048
     Dates: start: 20080101
  5. POTASSIUM CHLORIDE [Concomitant]
     Route: 048
     Dates: start: 20120427
  6. PROAIR HFA [Concomitant]
     Indication: ASTHMA
     Dosage: 2 PUFFS
     Route: 055
  7. PROPAFENONE HCL [Concomitant]
     Indication: TACHYCARDIA
     Route: 048
     Dates: start: 20100101, end: 20120427
  8. SYNTHROID [Concomitant]
     Indication: HYPOTHYROIDISM
     Route: 048
     Dates: start: 20070101
  9. VITAMIN D [Concomitant]
     Indication: SUPPLEMENTATION THERAPY
     Dosage: 5000 UNITS
     Route: 048
     Dates: start: 20090101
  10. ALBUTEROL [Concomitant]
     Indication: ASTHMA
     Dosage: 1-2 PUFFS PRN
     Route: 055
     Dates: start: 20090101, end: 20120427
  11. ACETAMINOPHEN [Concomitant]
     Indication: ARTHRALGIA
     Route: 048
     Dates: start: 20120427
  12. PEPCID [Concomitant]
     Indication: GASTROOESOPHAGEAL REFLUX DISEASE
     Route: 048
     Dates: start: 20100101, end: 20120427
  13. CIMZIA [Suspect]
     Route: 058
     Dates: start: 20110728, end: 20120427
  14. METHOTREXATE [Concomitant]
     Indication: RHEUMATOID ARTHRITIS
     Route: 030
     Dates: start: 20090101
  15. LASIX [Concomitant]
     Indication: OEDEMA
     Route: 048
     Dates: start: 20120215, end: 20120217
  16. IBUPROFEN [Concomitant]
     Indication: LIGAMENT SPRAIN
     Route: 048
     Dates: start: 20110120
  17. ALBUTEROL [Concomitant]
     Dosage: 2 PUFFS QID
     Route: 055
     Dates: start: 20120427
  18. ALBUTEROL [Concomitant]
     Dosage: 2 PUFFS QID
     Route: 055
     Dates: start: 20120427
  19. PREDNISONE TAB [Concomitant]
     Indication: RHEUMATOID ARTHRITIS
     Route: 048
     Dates: start: 20090101
  20. POTASSIUM CHLORIDE [Concomitant]
     Indication: SUPPLEMENTATION THERAPY
     Route: 048
     Dates: start: 20120201, end: 20120504
  21. PROPAFENONE HCL [Concomitant]
     Route: 048
     Dates: start: 20120427
  22. SYMBICORT HFA [Concomitant]
     Indication: ASTHMA
     Dosage: 2 PUFFS BID
     Route: 055
     Dates: start: 20100101
  23. HYDROCORTISONE [Concomitant]
     Indication: RASH
     Route: 061
     Dates: start: 20111230
  24. ZYRTEC [Concomitant]
     Indication: RASH
     Route: 048
     Dates: start: 20120101
  25. CRESTOR [Concomitant]
     Indication: HYPERLIPIDAEMIA
     Route: 048
     Dates: start: 20020101
  26. LASIX [Concomitant]
     Route: 048
     Dates: start: 20120224
  27. BROMDAY [Concomitant]
     Indication: CATARACT
     Dosage: 1 DROP QD
     Route: 047
     Dates: start: 20120314
  28. CIMZIA [Suspect]
     Route: 058
     Dates: start: 20110616, end: 20110714
  29. ZYMAXID [Concomitant]
     Indication: CATARACT
     Dosage: 1 DROP QID
     Route: 047
     Dates: start: 20120314
  30. LIDOCAINE [Concomitant]
     Indication: BLADDER CATHETERISATION
     Route: 061
     Dates: start: 20120430, end: 20120430
  31. ASPIRIN [Concomitant]
     Indication: PROPHYLAXIS
     Route: 048
     Dates: start: 20070101
  32. GLIMEPIRIDE [Concomitant]
     Indication: DIABETES MELLITUS
     Route: 048
     Dates: start: 20110101
  33. ALBUTEROL [Concomitant]
     Indication: WHEEZING
     Dosage: 1-2 PUFFS PRN
     Route: 055
     Dates: start: 20090101, end: 20120427
  34. FOLIC ACID [Concomitant]
     Indication: RHEUMATOID ARTHRITIS
     Route: 048
     Dates: start: 20090101
  35. DEXILANT [Concomitant]
     Indication: GASTROOESOPHAGEAL REFLUX DISEASE
     Route: 048
     Dates: start: 20110101, end: 20120427
  36. METOPROLOL [Concomitant]
     Route: 048
     Dates: start: 20120427

REACTIONS (7)
  - HAEMOGLOBIN DECREASED [None]
  - PROCEDURAL PAIN [None]
  - HAEMATOMA [None]
  - ATRIAL FIBRILLATION [None]
  - SUBMANDIBULAR MASS [None]
  - RED BLOOD CELL COUNT DECREASED [None]
  - HAEMATOCRIT DECREASED [None]
